FAERS Safety Report 16563500 (Version 1)
Quarter: 2019Q3

REPORT INFORMATION
  Report Type: Spontaneous
  Country: US (occurrence: US)
  Receive Date: 20190712
  Receipt Date: 20190712
  Transmission Date: 20191004
  Serious: No
  Sender: FDA-Public Use
  Company Number: US-ACCORD-134068

PATIENT
  Age: 84 Year
  Sex: Female

DRUGS (3)
  1. SPIRONOLACTONE ACCORD [Suspect]
     Active Substance: SPIRONOLACTONE
     Indication: DIURETIC THERAPY
     Dosage: 25 MG SPLIT FROM 50 MG, TAKEN TWICE A DAY
     Route: 048
  2. TRICOR [Concomitant]
     Active Substance: FENOFIBRATE
  3. POTASSIUM [Concomitant]
     Active Substance: POTASSIUM
     Dosage: 10 MMG

REACTIONS (5)
  - Product substitution issue [Unknown]
  - Product prescribing error [Unknown]
  - Product odour abnormal [Unknown]
  - Wrong technique in product usage process [Unknown]
  - Feeling abnormal [Not Recovered/Not Resolved]
